FAERS Safety Report 7041401-5 (Version None)
Quarter: 2010Q4

REPORT INFORMATION
  Report Type: 
  Country: None (occurrence: None)
  Receive Date: 20101007
  Receipt Date: 20100929
  Transmission Date: 20110411
  Serious: Yes (Hospitalization)
  Sender: FDA-Public Use
  Company Number: 2010MA003143

PATIENT
  Age: 74 Year
  Sex: Male

DRUGS (1)
  1. VINORELBINE [Suspect]
     Indication: LUNG CANCER METASTATIC
     Dosage: IV
     Route: 042

REACTIONS (11)
  - BLISTER [None]
  - C-REACTIVE PROTEIN INCREASED [None]
  - ERYTHEMA [None]
  - EXCESSIVE GRANULATION TISSUE [None]
  - EXTRAVASATION [None]
  - HAEMOGLOBIN DECREASED [None]
  - PAIN [None]
  - SKIN GRAFT [None]
  - SKIN NECROSIS [None]
  - SWELLING [None]
  - WHITE BLOOD CELL COUNT DECREASED [None]
